FAERS Safety Report 14375097 (Version 3)
Quarter: 2018Q1

REPORT INFORMATION
  Report Type: Spontaneous
  Country: US (occurrence: US)
  Receive Date: 20180111
  Receipt Date: 20180227
  Transmission Date: 20180509
  Serious: No
  Sender: FDA-Public Use
  Company Number: US-PFIZER INC-2018012427

PATIENT
  Age: 82 Year
  Sex: Female

DRUGS (1)
  1. XELJANZ [Suspect]
     Active Substance: TOFACITINIB CITRATE
     Dosage: 5 MG, UNK
     Dates: start: 201801, end: 20180215

REACTIONS (6)
  - Nausea [Unknown]
  - Influenza [Unknown]
  - Vomiting [Unknown]
  - Upper respiratory tract infection [Unknown]
  - Pyrexia [Unknown]
  - Pain in extremity [Unknown]

NARRATIVE: CASE EVENT DATE: 2018
